FAERS Safety Report 16613548 (Version 1)
Quarter: 2019Q3

REPORT INFORMATION
  Report Type: Spontaneous
  Country: US (occurrence: US)
  Receive Date: 20190723
  Receipt Date: 20190723
  Transmission Date: 20191004
  Serious: No
  Sender: FDA-Public Use
  Company Number: US-009507513-1907USA012918

PATIENT
  Sex: Male
  Weight: 111 kg

DRUGS (3)
  1. PRINIVIL [Suspect]
     Active Substance: LISINOPRIL
     Route: 048
  2. TAPENTADOL [Suspect]
     Active Substance: TAPENTADOL
  3. CODEINE [Suspect]
     Active Substance: CODEINE

REACTIONS (4)
  - Heart rate increased [Unknown]
  - Adverse event [Unknown]
  - Skin reaction [Unknown]
  - Drug hypersensitivity [Unknown]

NARRATIVE: CASE EVENT DATE: 20151117
